FAERS Safety Report 12133123 (Version 1)
Quarter: 2016Q1

REPORT INFORMATION
  Report Type: Spontaneous
  Country: US (occurrence: None)
  Receive Date: 20160229
  Receipt Date: 20160229
  Transmission Date: 20160526
  Serious: Yes (Other)
  Sender: FDA-Public Use
  Company Number: None

PATIENT
  Age: 33 Month
  Sex: Female
  Weight: 24.95 kg

DRUGS (2)
  1. TAMIFLU [Suspect]
     Active Substance: OSELTAMIVIR PHOSPHATE
     Indication: INFLUENZA
     Dates: start: 20160101
  2. MOTRIN [Concomitant]
     Active Substance: IBUPROFEN

REACTIONS (2)
  - Abnormal behaviour [None]
  - Pyrexia [None]

NARRATIVE: CASE EVENT DATE: 20160227
